FAERS Safety Report 12492382 (Version 1)
Quarter: 2016Q2

REPORT INFORMATION
  Report Type: Spontaneous
  Country: BR (occurrence: BR)
  Receive Date: 20160623
  Receipt Date: 20160623
  Transmission Date: 20160815
  Serious: Yes (Death, Other)
  Sender: FDA-Public Use
  Company Number: BR-PFIZER INC-2016307586

PATIENT
  Age: 85 Year
  Sex: Male
  Weight: 64 kg

DRUGS (7)
  1. LIPITOR [Suspect]
     Active Substance: ATORVASTATIN CALCIUM
     Indication: BLOOD CHOLESTEROL
     Dosage: 20 MG, UNK
     Route: 048
     Dates: end: 20160328
  2. ASPIRINA PREVENT [Concomitant]
     Active Substance: ASPIRIN
     Dosage: 1 TABLET/DAY
     Route: 048
     Dates: end: 20160328
  3. DAFLON [Concomitant]
     Active Substance: DIOSMIN\HESPERIDIN
     Dosage: UNK
     Route: 048
     Dates: end: 20160328
  4. DIOVAN [Concomitant]
     Active Substance: VALSARTAN
     Dosage: 2 TABLETS/DAY
     Route: 048
     Dates: end: 20160328
  5. LIPITOR [Suspect]
     Active Substance: ATORVASTATIN CALCIUM
     Indication: ANGIOPATHY
  6. AMLODIPINE [Concomitant]
     Active Substance: AMLODIPINE BESYLATE
     Dosage: UNK
     Route: 048
     Dates: end: 20160328
  7. VASOGARD [Concomitant]
     Active Substance: CILOSTAZOL
     Dosage: 1 TABLET/DAY
     Route: 048
     Dates: end: 20160328

REACTIONS (1)
  - Infarction [Fatal]
